FAERS Safety Report 24035481 (Version 1)
Quarter: 2024Q2

REPORT INFORMATION
  Report Type: Spontaneous
  Country: US (occurrence: None)
  Receive Date: 20240629
  Receipt Date: 20240629
  Transmission Date: 20240715
  Serious: Yes (Other)
  Sender: FDA-Public Use
  Company Number: None

PATIENT
  Age: 53 Year
  Sex: Female
  Weight: 60.3 kg

DRUGS (3)
  1. MOUNJARO [Suspect]
     Active Substance: TIRZEPATIDE
     Indication: Type 2 diabetes mellitus
     Dosage: FREQUENCY : WEEKLY;?
     Route: 058
     Dates: start: 19991202, end: 20240623
  2. TYLENOL [Concomitant]
     Active Substance: ACETAMINOPHEN
  3. ice packs [Concomitant]

REACTIONS (2)
  - Injection site haematoma [None]
  - Liquid product physical issue [None]

NARRATIVE: CASE EVENT DATE: 20240616
